FAERS Safety Report 23048753 (Version 1)
Quarter: 2023Q4

REPORT INFORMATION
  Report Type: Other
  Country: IR (occurrence: IR)
  Receive Date: 20231010
  Receipt Date: 20231010
  Transmission Date: 20240110
  Serious: Yes (Hospitalization, Other)
  Sender: FDA-Public Use
  Company Number: IR-Bion-012186

PATIENT
  Age: 39 Year
  Sex: Female

DRUGS (3)
  1. DEXAMETHASONE [Suspect]
     Active Substance: DEXAMETHASONE
     Indication: COVID-19
  2. REMDESIVIR [Concomitant]
     Active Substance: REMDESIVIR
     Indication: COVID-19
  3. PREDNISOLONE [Concomitant]
     Active Substance: PREDNISOLONE
     Indication: Vitritis
     Route: 048

REACTIONS (2)
  - Fungal endocarditis [Unknown]
  - Off label use [Unknown]
